FAERS Safety Report 17652295 (Version 1)
Quarter: 2020Q2

REPORT INFORMATION
  Report Type: Spontaneous
  Country: CN (occurrence: CN)
  Receive Date: 20200409
  Receipt Date: 20200409
  Transmission Date: 20200713
  Serious: Yes (Other)
  Sender: FDA-Public Use
  Company Number: CN-FRESENIUS KABI-FK202003586

PATIENT
  Age: 46 Year
  Sex: Male
  Weight: 60 kg

DRUGS (2)
  1. LIPOVENOES MCT 10% [Suspect]
     Active Substance: EGG PHOSPHOLIPIDS\GLYCERIN\MEDIUM-CHAIN TRIGLYCERIDES\SOYBEAN OIL
     Indication: NUTRITIONAL SUPPLEMENTATION
     Dosage: 250ML QD
     Route: 041
     Dates: start: 20200331, end: 20200331
  2. HERBAL EXTRACT NOS [Suspect]
     Active Substance: HERBALS
     Indication: DRUG THERAPY
     Dosage: 250ML
     Route: 041
     Dates: start: 20200331, end: 20200331

REACTIONS (3)
  - Pruritus [Recovering/Resolving]
  - Rash erythematous [Recovering/Resolving]
  - Abdominal discomfort [Recovering/Resolving]

NARRATIVE: CASE EVENT DATE: 20200331
